FAERS Safety Report 11906571 (Version 1)
Quarter: 2016Q1

REPORT INFORMATION
  Report Type: Spontaneous
  Country: US (occurrence: US)
  Receive Date: 20160111
  Receipt Date: 20160111
  Transmission Date: 20160526
  Serious: Yes (Death)
  Sender: FDA-Public Use
  Company Number: PHEH2016US000745

PATIENT
  Sex: Male

DRUGS (1)
  1. TYKERB [Suspect]
     Active Substance: LAPATINIB DITOSYLATE
     Indication: SMALL INTESTINE CARCINOMA
     Dosage: 1250 MG, QD
     Route: 048
     Dates: start: 20150820

REACTIONS (2)
  - Product use issue [Unknown]
  - Death [Fatal]
